FAERS Safety Report 8373266-3 (Version None)
Quarter: 2012Q2

REPORT INFORMATION
  Report Type: 
  Country: None (occurrence: None)
  Receive Date: 20120521
  Receipt Date: 20120511
  Transmission Date: 20120825
  Serious: Yes (Hospitalization, Other)
  Sender: FDA-Public Use
  Company Number: JP-VERTEX PHARMACEUTICALS INC.-AE-2012-003747

PATIENT
  Age: 66 Year
  Sex: Female

DRUGS (18)
  1. FAMOTIDINE [Concomitant]
     Route: 048
  2. PRIMPERAN TAB [Concomitant]
     Route: 048
     Dates: start: 20120309
  3. REBETOL [Concomitant]
     Route: 048
     Dates: start: 20120204, end: 20120210
  4. REBETOL [Concomitant]
     Route: 048
     Dates: start: 20120218, end: 20120330
  5. SENNOSIDE [Concomitant]
     Route: 048
  6. FAMOTIDINE [Concomitant]
     Route: 048
  7. REBETOL [Concomitant]
     Indication: HEPATITIS C
     Route: 048
     Dates: start: 20120120, end: 20120203
  8. MAGNESIUM SULFATE [Concomitant]
     Route: 048
  9. REBETOL [Concomitant]
     Route: 048
     Dates: start: 20120413
  10. RIZE [Concomitant]
     Route: 048
     Dates: start: 20120327
  11. PEG-INTRON [Concomitant]
     Indication: HEPATITIS C
     Route: 058
     Dates: start: 20120120
  12. ALPRAZOLAM [Concomitant]
     Route: 048
     Dates: start: 20120327
  13. REBETOL [Concomitant]
     Route: 048
     Dates: start: 20120211, end: 20120217
  14. LEVOFLOXACIN [Concomitant]
     Route: 047
     Dates: start: 20120125
  15. ZOLPIDEM [Concomitant]
     Route: 048
     Dates: start: 20120302
  16. TELAVIC (TELAPREVIR) [Suspect]
     Indication: HEPATITIS C
     Route: 048
     Dates: start: 20120120, end: 20120330
  17. ROHYPNOL [Concomitant]
     Route: 048
     Dates: start: 20120326
  18. PRIMPERAN TAB [Concomitant]
     Dates: start: 20120129, end: 20120129

REACTIONS (4)
  - LOSS OF CONSCIOUSNESS [None]
  - DECREASED APPETITE [None]
  - MALAISE [None]
  - ANAEMIA [None]
